FAERS Safety Report 25815742 (Version 1)
Quarter: 2025Q3

REPORT INFORMATION
  Report Type: Spontaneous
  Country: US (occurrence: US)
  Receive Date: 20250918
  Receipt Date: 20250918
  Transmission Date: 20251020
  Serious: No
  Sender: Haleon PLC
  Company Number: US-HALEON-2263149

PATIENT

DRUGS (5)
  1. NICORETTE [Suspect]
     Active Substance: NICOTINE
     Indication: Smoking cessation therapy
  2. NICORETTE MINT [Suspect]
     Active Substance: NICOTINE
     Indication: Smoking cessation therapy
  3. NICORETTE FRUIT CHILL [Suspect]
     Active Substance: NICOTINE
     Indication: Smoking cessation therapy
  4. NICORETTE [Suspect]
     Active Substance: NICOTINE
     Indication: Smoking cessation therapy
  5. NICORETTE CINNAMON SURGE [Suspect]
     Active Substance: NICOTINE
     Indication: Smoking cessation therapy

REACTIONS (1)
  - Oral discomfort [Unknown]
